FAERS Safety Report 8565920 (Version 2)
Quarter: 2013Q3

REPORT INFORMATION
  Report Type: Spontaneous
  Country: US (occurrence: US)
  Receive Date: 20120516
  Receipt Date: 20130708
  Transmission Date: 20140515
  Serious: Yes (Death, Hospitalization, Other)
  Sender: FDA-Public Use
  Company Number: PHHY2012US040631

PATIENT
  Age: 53 Year
  Sex: Male
  Weight: 84 kg

DRUGS (2)
  1. CARISOPRODOL [Suspect]
  2. ACETAMINOPHEN W/HYDROCODONE [Suspect]

REACTIONS (11)
  - Myocardial infarction [Fatal]
  - Hypokinesia [Fatal]
  - Mental status changes [Unknown]
  - Suicide attempt [Unknown]
  - Miosis [Unknown]
  - Periorbital oedema [Unknown]
  - Stupor [Unknown]
  - Anaphylactoid reaction [Unknown]
  - Hypotension [Unknown]
  - Rash [Unknown]
  - Overdose [Unknown]
